FAERS Safety Report 16780094 (Version 4)
Quarter: 2019Q4

REPORT INFORMATION
  Report Type: Spontaneous
  Country: US (occurrence: US)
  Receive Date: 20190906
  Receipt Date: 20191127
  Transmission Date: 20200122
  Serious: Yes (Other)
  Sender: FDA-Public Use
  Company Number: US-CATALYST PHARMACEUTICALS, INC-2019CAT00207

PATIENT
  Age: 75 Year
  Sex: Male
  Weight: 82.99 kg

DRUGS (8)
  1. PRILOSEC [Concomitant]
     Active Substance: OMEPRAZOLE MAGNESIUM
     Dosage: UNK, 1X/DAY
  2. FIRDAPSE [Suspect]
     Active Substance: AMIFAMPRIDINE
     Indication: MYASTHENIC SYNDROME
     Dosage: 20 MG, 3X/DAY
     Route: 048
     Dates: start: 201905, end: 20190613
  3. FIRDAPSE [Suspect]
     Active Substance: AMIFAMPRIDINE
     Dosage: 10 MG, 3X/DAY
     Route: 048
     Dates: start: 2019, end: 201910
  4. MOTRIN [Concomitant]
     Active Substance: IBUPROFEN
     Dosage: 800 MG, AS NEEDED
  5. FLEXERIL [Concomitant]
     Active Substance: CYCLOBENZAPRINE HYDROCHLORIDE
     Dosage: UNK, AS NEEDED
  6. FIRDAPSE [Suspect]
     Active Substance: AMIFAMPRIDINE
     Indication: AUTOIMMUNE DISORDER
     Dosage: 10 MG, 3X/DAY
     Route: 048
     Dates: start: 20190614, end: 2019
  7. IBUPROFEN. [Concomitant]
     Active Substance: IBUPROFEN
  8. PREDNISONE. [Concomitant]
     Active Substance: PREDNISONE
     Indication: DISCOMFORT
     Dosage: 5 MG, 3X/DAY

REACTIONS (9)
  - Drug ineffective [Recovered/Resolved]
  - Gait disturbance [Recovering/Resolving]
  - Product dose omission [Recovered/Resolved]
  - Skin discolouration [Unknown]
  - Peripheral swelling [Recovering/Resolving]
  - Rotator cuff syndrome [Recovered/Resolved]
  - Brain neoplasm malignant [Not Recovered/Not Resolved]
  - Small cell lung cancer recurrent [Not Recovered/Not Resolved]
  - Fall [Unknown]

NARRATIVE: CASE EVENT DATE: 2019
